FAERS Safety Report 15907811 (Version 1)
Quarter: 2019Q1

REPORT INFORMATION
  Report Type: Spontaneous
  Country: RU (occurrence: RU)
  Receive Date: 20190204
  Receipt Date: 20190204
  Transmission Date: 20190417
  Serious: Yes (Other)
  Sender: FDA-Public Use
  Company Number: RU-SAKK-2019SA024798AA

PATIENT
  Age: 15 Year
  Sex: Male

DRUGS (3)
  1. MYLERAN [Suspect]
     Active Substance: BUSULFAN
     Indication: BONE MARROW CONDITIONING REGIMEN
     Dosage: UNK MG/M2
  2. CYCLOPHOSPHAMIDE. [Suspect]
     Active Substance: CYCLOPHOSPHAMIDE
     Indication: BONE MARROW CONDITIONING REGIMEN
     Dosage: UNK MG/M2
  3. THYMOGLOBULIN [Suspect]
     Active Substance: LAPINE T-LYMPHOCYTE IMMUNE GLOBULIN
     Indication: BONE MARROW CONDITIONING REGIMEN
     Dosage: UNK MG/M2
     Route: 042

REACTIONS (5)
  - Blood immunoglobulin A decreased [Recovered/Resolved]
  - Herpes zoster [Recovered/Resolved]
  - Staphylococcal infection [Recovered/Resolved]
  - Blood immunoglobulin M decreased [Recovered/Resolved]
  - Product use in unapproved indication [Recovered/Resolved]
